FAERS Safety Report 5007764-7 (Version None)
Quarter: 2006Q2

REPORT INFORMATION
  Report Type: 
  Country: None (occurrence: None)
  Receive Date: 20060522
  Receipt Date: 20060515
  Transmission Date: 20061013
  Serious: Yes (Other)
  Sender: FDA-Public Use
  Company Number: US-GLAXOSMITHKLINE-A0605597A

PATIENT
  Age: 47 Year
  Sex: Male

DRUGS (3)
  1. PAXIL [Suspect]
     Indication: DRUG USE FOR UNKNOWN INDICATION
     Dosage: 25MG PER DAY
     Route: 048
     Dates: start: 20031101, end: 20060511
  2. ALLOPURINOL [Concomitant]
  3. SYNTHROID [Concomitant]

REACTIONS (4)
  - HEADACHE [None]
  - MENTAL IMPAIRMENT [None]
  - SUICIDAL IDEATION [None]
  - THINKING ABNORMAL [None]
